FAERS Safety Report 19009629 (Version 3)
Quarter: 2021Q3

REPORT INFORMATION
  Report Type: Spontaneous
  Country: US (occurrence: US)
  Receive Date: 20210315
  Receipt Date: 20210915
  Transmission Date: 20211014
  Serious: Yes (Hospitalization)
  Sender: FDA-Public Use
  Company Number: US-TAKEDA-2021TUS015734

PATIENT
  Sex: Female
  Weight: 76.9 kg

DRUGS (2)
  1. ICLUSIG [Suspect]
     Active Substance: PONATINIB
     Indication: CHRONIC LYMPHOCYTIC LEUKAEMIA
     Dosage: 30 MILLIGRAM, QD
     Route: 048
  2. ICLUSIG [Suspect]
     Active Substance: PONATINIB
     Indication: ACUTE LYMPHOCYTIC LEUKAEMIA (IN REMISSION)
     Dosage: 45 MILLIGRAM
     Route: 048
     Dates: start: 20200923

REACTIONS (6)
  - Pharyngitis [Unknown]
  - Dyspnoea [Unknown]
  - Pyrexia [Unknown]
  - Blood pressure increased [Unknown]
  - Product dose omission issue [Unknown]
  - Off label use [Unknown]
